FAERS Safety Report 12379570 (Version 2)
Quarter: 2016Q2

REPORT INFORMATION
  Report Type: Spontaneous
  Country: GB (occurrence: GB)
  Receive Date: 20160517
  Receipt Date: 20160628
  Transmission Date: 20160815
  Serious: Yes (Other)
  Sender: FDA-Public Use
  Company Number: GB-MYLANLABS-2016M1019571

PATIENT

DRUGS (5)
  1. DIAZEPAM. [Concomitant]
     Active Substance: DIAZEPAM
     Indication: ANXIETY
     Dosage: 2MG TABLETS 1-2 TABLETS AS REQUIRED
  2. FLUCLOXACILLIN [Suspect]
     Active Substance: FLUCLOXACILLIN
     Dosage: 1 G, QID (FOR 6 DAYS)
     Route: 048
  3. ACICLOVIR [Suspect]
     Active Substance: ACYCLOVIR
     Dosage: UNK (200MG 5 X DAILY FOR 6 DAYS FOLLOWED BY 800MG 5 X DAILY FOR 2 DAYS)
  4. DARBEPOETIN ALFA [Concomitant]
     Active Substance: DARBEPOETIN ALFA
     Dosage: 1 DF, BIWEEKLY (60MICROGRAMS/0.3ML)
  5. RANITIDINE. [Concomitant]
     Active Substance: RANITIDINE
     Dosage: 150 MG, BID (WHILST TAKING PREDNISOLONE)

REACTIONS (2)
  - Tubulointerstitial nephritis [Recovered/Resolved]
  - Disease progression [Unknown]
